FAERS Safety Report 6093387-8 (Version None)
Quarter: 2009Q1

REPORT INFORMATION
  Report Type: 
  Country: None (occurrence: None)
  Receive Date: 20090226
  Receipt Date: 20090213
  Transmission Date: 20090719
  Serious: Yes (Other)
  Sender: FDA-Public Use
  Company Number: US-ROCHE-414949

PATIENT
  Sex: Female
  Weight: 85.3 kg

DRUGS (5)
  1. PEGASYS [Suspect]
     Indication: HEPATITIS C
     Dosage: DOSAGE REGIMEN VARIES DEPENDING ON LAB VALUES.
     Route: 058
     Dates: start: 20050201
  2. COPEGUS [Suspect]
     Indication: HEPATITIS C
     Dosage: DOSAGE REGIMEN: 3 AM,  3 PM.
     Route: 048
     Dates: start: 20050201
  3. PEG-INTRON [Suspect]
     Indication: DRUG USE FOR UNKNOWN INDICATION
     Route: 065
     Dates: end: 20080201
  4. ALCOHOL [Suspect]
     Indication: DRUG USE FOR UNKNOWN INDICATION
     Route: 065
  5. ALCOHOL [Suspect]
     Route: 065
     Dates: start: 20080101

REACTIONS (15)
  - ALCOHOL USE [None]
  - ALOPECIA [None]
  - AMNESIA [None]
  - ANOREXIA [None]
  - ANXIETY [None]
  - CONVULSION [None]
  - FATIGUE [None]
  - HYPERAESTHESIA [None]
  - IRRITABILITY [None]
  - MUSCULOSKELETAL PAIN [None]
  - RASH [None]
  - RAYNAUD'S PHENOMENON [None]
  - RED BLOOD CELL COUNT DECREASED [None]
  - VIRAL LOAD INCREASED [None]
  - WHITE BLOOD CELL COUNT DECREASED [None]
